FAERS Safety Report 17290495 (Version 2)
Quarter: 2020Q2

REPORT INFORMATION
  Report Type: Report from Study
  Country: US (occurrence: US)
  Receive Date: 20200121
  Receipt Date: 20200430
  Transmission Date: 20200713
  Serious: No
  Sender: FDA-Public Use
  Company Number: NVSC2020US012534

PATIENT
  Age: 63 Year
  Sex: Female
  Weight: 51.3 kg

DRUGS (21)
  1. ETHAMBUTOL [Concomitant]
     Active Substance: ETHAMBUTOL HYDROCHLORIDE
     Indication: MYCOBACTERIUM AVIUM COMPLEX INFECTION
     Dosage: 100 MG, QD
     Route: 065
     Dates: start: 20180714
  2. ENSURE [Concomitant]
     Active Substance: AMINO ACIDS\DEXTROSE\ELECTROLYTES NOS\SOYBEAN OIL\VITAMINS
     Indication: OSTEOPOROSIS
     Dosage: 1 DF, QD
     Route: 065
  3. OMEGA 3 FISH OIL [Concomitant]
     Active Substance: FISH OIL\OMEGA-3 FATTY ACIDS
     Indication: SUPPLEMENTATION THERAPY
     Dosage: 1 DF, TIW
     Route: 065
  4. SODIUM CHLORIDE. [Concomitant]
     Active Substance: SODIUM CHLORIDE
     Indication: BRONCHIECTASIS
     Dosage: 4 MG, BID
     Route: 065
  5. LAMPRENE [Suspect]
     Active Substance: CLOFAZIMINE
     Indication: MYCOBACTERIUM AVIUM COMPLEX INFECTION
     Dosage: 100 MG, QD
     Route: 048
  6. MAGNESIUM CHLORIDE. [Concomitant]
     Active Substance: MAGNESIUM CHLORIDE
     Indication: MYCOBACTERIUM AVIUM COMPLEX INFECTION
     Dosage: 1/16 TEASPOON, BID
     Route: 065
     Dates: start: 20190717
  7. AZITHROMYCIN ANHYDROUS. [Concomitant]
     Active Substance: AZITHROMYCIN ANHYDROUS
     Indication: MYCOBACTERIUM AVIUM COMPLEX INFECTION
     Dosage: 500 MG, QD
     Route: 065
     Dates: start: 20190322
  8. CALCIUM GLUCONATE. [Concomitant]
     Active Substance: CALCIUM GLUCONATE
     Indication: OSTEOPOROSIS
     Dosage: 50 MG, TIW
     Route: 065
  9. AMIKACIN. [Concomitant]
     Active Substance: AMIKACIN
     Indication: MYCOBACTERIUM AVIUM COMPLEX INFECTION
     Dosage: 1 DF, QD
     Route: 055
  10. RIFAMPIN. [Concomitant]
     Active Substance: RIFAMPIN
     Indication: MYCOBACTERIUM AVIUM COMPLEX INFECTION
     Dosage: 300 MG, QD
     Route: 065
     Dates: start: 20190305
  11. VITAMIN B COMPLEX [Concomitant]
     Active Substance: CYANOCOBALAMIN\DEXPANTHENOL\NIACINAMIDE\PYRIDOXINE HYDROCHLORIDE\RIBOFLAVIN 5^-PHOSPHATE SODIUM\THIAMINE HYDROCHLORIDE\VITAMIN B COMPLEX
     Indication: VITAMIN SUPPLEMENTATION
     Dosage: 1 DF, TIW
     Route: 065
  12. CHOLECALCIFEROL [Concomitant]
     Active Substance: CHOLECALCIFEROL
     Indication: OSTEOPOROSIS
     Dosage: 1 DF, TIW
     Route: 065
  13. COENZYME Q10 [Concomitant]
     Active Substance: UBIDECARENONE
     Indication: ENZYME SUPPLEMENTATION
     Dosage: 100 MG, TIW
     Route: 065
  14. HYDROCHLORIC ACID [Concomitant]
     Active Substance: HYDROCHLORIC ACID
     Indication: SUPPLEMENTATION THERAPY
     Dosage: 1 DF, QD
     Route: 065
  15. HIDROCORTISON [Concomitant]
     Active Substance: HYDROCORTISONE
     Indication: RASH
     Dosage: 1 APPLICATION, QD
     Route: 065
  16. ZINC GLUCONATE [Concomitant]
     Active Substance: ZINC GLUCONATE
     Indication: SUPPLEMENTATION THERAPY
     Dosage: 50 MG, TIW
     Route: 065
  17. TRIAMCINOLONE ACETONIDE. [Concomitant]
     Active Substance: TRIAMCINOLONE ACETONIDE
     Indication: RASH
     Dosage: 4 ML, BID
     Route: 065
  18. MAGNESIUM CHLORIDE. [Concomitant]
     Active Substance: MAGNESIUM CHLORIDE
     Indication: MYCOBACTERIUM AVIUM COMPLEX INFECTION
     Dosage: 2.5 ML, BID
     Route: 065
     Dates: start: 20190717
  19. LACTOBACILLUS BULGARIS LYOPHYLISATED [Concomitant]
     Indication: SUPPLEMENTATION THERAPY
     Dosage: 1 TABLET EVERY EVENING
     Route: 065
  20. ARMOUR THYROID [Concomitant]
     Active Substance: THYROID, PORCINE
     Indication: THYROID DISORDER
     Dosage: 60 MG, BID
     Route: 065
     Dates: start: 20181203
  21. DIGESTIVE ENZYMES [Concomitant]
     Active Substance: UNSPECIFIED INGREDIENT
     Indication: ENZYME SUPPLEMENTATION
     Dosage: 1 DF, QD
     Route: 065

REACTIONS (1)
  - Vertigo [Recovered/Resolved]

NARRATIVE: CASE EVENT DATE: 20190212
